FAERS Safety Report 9619373 (Version 1)
Quarter: 2013Q4

REPORT INFORMATION
  Report Type: Spontaneous
  Country: US (occurrence: US)
  Receive Date: 20131014
  Receipt Date: 20131014
  Transmission Date: 20140711
  Serious: No
  Sender: FDA-Public Use
  Company Number: US-BAYER-2013-123541

PATIENT
  Age: 35 Year
  Sex: Female
  Weight: 69.84 kg

DRUGS (1)
  1. ALEVE CAPLET [Suspect]
     Dosage: 1 DF, PRN
     Route: 048

REACTIONS (1)
  - Tremor [Recovered/Resolved]
